FAERS Safety Report 18852993 (Version 1)
Quarter: 2021Q1

REPORT INFORMATION
  Report Type: Spontaneous
  Country: US (occurrence: US)
  Receive Date: 20210205
  Receipt Date: 20210205
  Transmission Date: 20210420
  Serious: Yes (Other)
  Sender: FDA-Public Use
  Company Number: US-MYLANLABS-2021M1007157

PATIENT
  Age: 67 Year
  Sex: Male

DRUGS (4)
  1. MILTEFOSINE [Suspect]
     Active Substance: MILTEFOSINE
     Dosage: 150 MILLIGRAM, QD
     Route: 048
     Dates: start: 201804
  2. KETOCONAZOLE. [Suspect]
     Active Substance: KETOCONAZOLE
     Dosage: TWO CONSECUTIVE 42?DAY COURSES
     Route: 048
     Dates: start: 2018
  3. MILTEFOSINE [Suspect]
     Active Substance: MILTEFOSINE
     Indication: CUTANEOUS LEISHMANIASIS
     Dosage: 150 MILLIGRAM, QD TWO CONSECUTIV..
     Route: 048
     Dates: start: 201706
  4. KETOCONAZOLE. [Suspect]
     Active Substance: KETOCONAZOLE
     Indication: CUTANEOUS LEISHMANIASIS
     Dosage: 600 MILLIGRAM, QD
     Route: 048
     Dates: start: 201711

REACTIONS (1)
  - Drug ineffective [Unknown]
